FAERS Safety Report 5534045-5 (Version None)
Quarter: 2007Q4

REPORT INFORMATION
  Report Type: 
  Country: None (occurrence: None)
  Receive Date: 20071129
  Receipt Date: 20071129
  Transmission Date: 20080405
  Serious: Yes (Disabling)
  Sender: FDA-Public Use
  Company Number: None

PATIENT
  Age: 90 Year
  Sex: Male
  Weight: 72.5755 kg

DRUGS (1)
  1. ARGATROBAN [Suspect]
     Indication: ANTICOAGULANT THERAPY
     Dosage: 2.2MCG/KG/MIN CONTINUOUSE IV IV DRIP
     Route: 041
     Dates: start: 20070930, end: 20071001

REACTIONS (2)
  - EAR HAEMORRHAGE [None]
  - MOUTH HAEMORRHAGE [None]
